FAERS Safety Report 17108659 (Version 2)
Quarter: 2019Q4

REPORT INFORMATION
  Report Type: Report from Study
  Country: US (occurrence: US)
  Receive Date: 20191203
  Receipt Date: 20191227
  Transmission Date: 20200122
  Serious: Yes (Death, Hospitalization)
  Sender: FDA-Public Use
  Company Number: US-TAIHO ONCOLOGY  INC-EU-2019-03836

PATIENT
  Age: 55 Year
  Sex: Male
  Weight: 64.9 kg

DRUGS (2)
  1. TAS-102 [Suspect]
     Active Substance: TIPIRACIL HYDROCHLORIDE\TRIFLURIDINE
     Indication: OESOPHAGEAL ADENOCARCINOMA
     Dosage: COMPLETED 40 DOSES. LAST DOSE ADMINISTERED ON 22/OCT/2019.
     Route: 048
     Dates: start: 20190606, end: 20191022
  2. RAMUCIRUMAB [Suspect]
     Active Substance: RAMUCIRUMAB
     Indication: OESOPHAGEAL ADENOCARCINOMA
     Dosage: COMPLETED 6 DOSES. LAST DOSE ADMINISTERED ON 10/OCT/2019.
     Route: 042
     Dates: start: 20190606, end: 20191010

REACTIONS (6)
  - Dyspnoea [Unknown]
  - Respiratory failure [Unknown]
  - Disease progression [Fatal]
  - Cough [Unknown]
  - Pneumonitis [Unknown]
  - Vocal cord paralysis [Unknown]

NARRATIVE: CASE EVENT DATE: 201911
